FAERS Safety Report 6922922-X (Version None)
Quarter: 2010Q3

REPORT INFORMATION
  Report Type: 
  Country: None (occurrence: None)
  Receive Date: 20100813
  Receipt Date: 20100805
  Transmission Date: 20110219
  Serious: Yes (Hospitalization)
  Sender: FDA-Public Use
  Company Number: PHHO2010FR11915

PATIENT
  Sex: Male
  Weight: 72 kg

DRUGS (3)
  1. CERTICAN [Suspect]
     Indication: RENAL TRANSPLANT
     Dosage: 5 MG, BID
     Route: 048
     Dates: start: 20100703
  2. SOLU-MEDROL [Suspect]
     Indication: RENAL TRANSPLANT
     Dosage: 500 MG, UNK
     Route: 042
     Dates: start: 20100628
  3. CORTANCYL [Suspect]
     Indication: RENAL TRANSPLANT
     Dosage: 25 MG, UNK
     Route: 048
     Dates: start: 20100703

REACTIONS (3)
  - OEDEMA PERIPHERAL [None]
  - PAIN [None]
  - PRURITUS [None]
